FAERS Safety Report 16378139 (Version 2)
Quarter: 2019Q4

REPORT INFORMATION
  Report Type: Spontaneous
  Country: NZ (occurrence: NZ)
  Receive Date: 20190531
  Receipt Date: 20191004
  Transmission Date: 20200122
  Serious: Yes (Death, Hospitalization, Other)
  Sender: FDA-Public Use
  Company Number: NZ-JNJFOC-20190539379

PATIENT
  Age: 74 Year
  Sex: Female

DRUGS (11)
  1. REMICADE [Suspect]
     Active Substance: INFLIXIMAB
     Indication: COLITIS ULCERATIVE
     Route: 042
     Dates: start: 201904
  2. WARFARIN [Concomitant]
     Active Substance: WARFARIN
     Route: 065
  3. ESTRIOL [Concomitant]
     Active Substance: ESTRIOL
     Route: 065
  4. HYDROCORTISONE ENEMA [Concomitant]
     Route: 065
  5. MESALAZINE [Concomitant]
     Active Substance: MESALAMINE
     Route: 065
  6. CILAZAPRIL [Concomitant]
     Active Substance: CILAZAPRIL ANHYDROUS
     Route: 065
  7. PREDNISONE. [Concomitant]
     Active Substance: PREDNISONE
     Route: 065
  8. AZATHIOPRINE. [Concomitant]
     Active Substance: AZATHIOPRINE
     Route: 065
  9. OMEPRAZOLE. [Concomitant]
     Active Substance: OMEPRAZOLE
     Route: 065
  10. COLECALCIFEROL [Concomitant]
     Active Substance: CHOLECALCIFEROL
     Route: 065
  11. TAMOXIFEN [Concomitant]
     Active Substance: TAMOXIFEN
     Route: 065

REACTIONS (8)
  - Respiratory distress [Fatal]
  - Respiratory failure [Unknown]
  - Femoral neck fracture [Unknown]
  - Fall [Unknown]
  - Chronic kidney disease [Unknown]
  - Deep vein thrombosis [Unknown]
  - Pneumonia [Unknown]
  - Nerve block [Unknown]

NARRATIVE: CASE EVENT DATE: 2019
